FAERS Safety Report 9371455 (Version 1)
Quarter: 2013Q4

REPORT INFORMATION
  Report Type: Spontaneous
  Country: US (occurrence: None)
  Receive Date: 20130626
  Receipt Date: 20130626
  Transmission Date: 20140711
  Serious: Yes (Hospitalization)
  Sender: FDA-Public Use
  Company Number: None

PATIENT
  Sex: Male
  Weight: 153.68 kg

DRUGS (14)
  1. BORTEZOMIB [Suspect]
     Indication: ACUTE MYELOID LEUKAEMIA
     Dosage: SQ 1.3 MG/M2 D1,4, 8, 11
     Route: 058
     Dates: start: 20130605, end: 20130615
  2. LIPOSOMAL DOXORUBICIN [Suspect]
     Indication: ACUTE MYELOID LEUKAEMIA
     Dosage: IV 40 MG/M2 D4
     Route: 042
     Dates: start: 20130608
  3. TYLENOL/CODEINE [Concomitant]
  4. ZOVIRAX [Concomitant]
  5. ALBUTEROL [Concomitant]
  6. COREG [Concomitant]
  7. DIFLUCAN [Concomitant]
  8. DILAUDID [Concomitant]
  9. LANTUS [Concomitant]
  10. INSULIN [Concomitant]
  11. DUONEB [Concomitant]
  12. MORPHINE [Concomitant]
  13. PRILOSEC [Concomitant]
  14. PRAVACHOL [Concomitant]

REACTIONS (6)
  - Back pain [None]
  - Asthenia [None]
  - Fatigue [None]
  - Nausea [None]
  - Vomiting [None]
  - Cellulitis [None]
